FAERS Safety Report 8115281-0 (Version None)
Quarter: 2012Q1

REPORT INFORMATION
  Report Type: 
  Country: None (occurrence: None)
  Receive Date: 20120206
  Receipt Date: 20120127
  Transmission Date: 20120608
  Serious: No
  Sender: FDA-Public Use
  Company Number: JP-ASTELLAS-2012JP000217

PATIENT
  Age: 45 Year
  Sex: Male
  Weight: 64 kg

DRUGS (9)
  1. TACROLIMUS [Suspect]
     Dosage: 1.5 MG, BID
     Route: 048
     Dates: start: 20110519, end: 20110525
  2. FULCALIQ [Suspect]
     Indication: COLITIS ULCERATIVE
     Dosage: 2 DF, UNKNOWN/D
     Route: 065
     Dates: start: 20110513, end: 20110601
  3. TACROLIMUS [Suspect]
     Dosage: 1 MG, BID
     Route: 048
     Dates: start: 20110525, end: 20110613
  4. CEFOTIAM HYDROCHLORIDE [Suspect]
     Indication: COLITIS ULCERATIVE
     Dosage: 1 G, BID
     Route: 065
     Dates: start: 20110512, end: 20110517
  5. PENTASA [Concomitant]
     Indication: COLITIS ULCERATIVE
     Dosage: 4000 MG, UNKNOWN/D
     Route: 048
     Dates: start: 20110513
  6. IMURAN [Concomitant]
     Indication: COLITIS ULCERATIVE
     Dosage: 100 MG, UNKNOWN/D
     Route: 048
     Dates: start: 20110530
  7. IMURAN [Concomitant]
     Dosage: 50 MG, UNKNOWN/D
     Route: 048
     Dates: start: 20111116
  8. TACROLIMUS [Suspect]
     Dosage: 0.05 MG/KG, UNK
     Route: 048
     Dates: start: 20110513
  9. TACROLIMUS [Suspect]
     Indication: COLITIS ULCERATIVE
     Dosage: 3 MG, BID
     Route: 048
     Dates: end: 20110519

REACTIONS (2)
  - RENAL DISORDER [None]
  - HEPATIC STEATOSIS [None]
